FAERS Safety Report 19684472 (Version 2)
Quarter: 2021Q3

REPORT INFORMATION
  Report Type: Report from Study
  Country: US (occurrence: US)
  Receive Date: 20210811
  Receipt Date: 20210820
  Transmission Date: 20211014
  Serious: Yes (Hospitalization)
  Sender: FDA-Public Use
  Company Number: US-GLAXOSMITHKLINE-US2021AMR125843

PATIENT
  Sex: Female

DRUGS (2)
  1. BELANTAMAB MAFODOTIN. [Suspect]
     Active Substance: BELANTAMAB MAFODOTIN
     Indication: PRODUCT USED FOR UNKNOWN INDICATION
     Dosage: UNK
  2. LUCENTIS [Suspect]
     Active Substance: RANIBIZUMAB
     Indication: PRODUCT USED FOR UNKNOWN INDICATION
     Dosage: 0.5 MG, QD
     Dates: start: 20210416

REACTIONS (6)
  - Vertebral column mass [Unknown]
  - Eye pain [Unknown]
  - Night blindness [Unknown]
  - Corneal disorder [Unknown]
  - Visual acuity reduced [Unknown]
  - Keratopathy [Unknown]
